FAERS Safety Report 17750441 (Version 1)
Quarter: 2020Q2

REPORT INFORMATION
  Report Type: Spontaneous
  Country: IN (occurrence: IN)
  Receive Date: 20200506
  Receipt Date: 20200506
  Transmission Date: 20200714
  Serious: Yes (Other)
  Sender: FDA-Public Use
  Company Number: IN-SUN PHARMACEUTICAL INDUSTRIES LTD-2020R1-245841

PATIENT
  Age: 51 Year
  Sex: Female

DRUGS (2)
  1. HYDROXYCHLOROQUINE [Suspect]
     Active Substance: HYDROXYCHLOROQUINE
     Indication: MIXED CONNECTIVE TISSUE DISEASE
     Dosage: 400 MILLIGRAM, DAILY
     Route: 065
  2. PREDNISOLONE. [Concomitant]
     Active Substance: PREDNISOLONE
     Indication: MIXED CONNECTIVE TISSUE DISEASE
     Dosage: UNK (40 MG/ DAY OF PREDNISOLONE WITH GRADUAL TAPER TO 5 MG/DAY AND MAINTAINED)
     Route: 065

REACTIONS (2)
  - Deafness neurosensory [Recovering/Resolving]
  - Glomerulonephritis membranous [Unknown]
